FAERS Safety Report 4679927-1 (Version None)
Quarter: 2005Q2

REPORT INFORMATION
  Report Type: 
  Country: None (occurrence: None)
  Receive Date: 20050602
  Receipt Date: 20050523
  Transmission Date: 20051028
  Serious: Yes (Hospitalization)
  Sender: FDA-Public Use
  Company Number: PHBS2005ES07258

PATIENT
  Age: 49 Year
  Sex: Female

DRUGS (1)
  1. LIPOSIT PROLIB [Suspect]
     Indication: LIPID METABOLISM DISORDER
     Dosage: 80 MG/DAY
     Route: 048
     Dates: start: 20050129, end: 20050320

REACTIONS (2)
  - RENAL FAILURE ACUTE [None]
  - RHABDOMYOLYSIS [None]
